FAERS Safety Report 8127075-0 (Version None)
Quarter: 2011Q4

REPORT INFORMATION
  Report Type: 
  Country: None (occurrence: None)
  Receive Date: 20111227
  Receipt Date: 20111031
  Transmission Date: 20120403
  Serious: No
  Sender: FDA-Public Use
  Company Number: PHHY2011US06906

PATIENT
  Age: 60 Year
  Sex: Female

DRUGS (10)
  1. LEVOTHYROXINE SODIUM [Concomitant]
  2. FENTANYL [Concomitant]
  3. PROZAC [Concomitant]
  4. GLIMERINE [Concomitant]
  5. ELAVIL [Concomitant]
  6. PROVIGIL [Concomitant]
  7. ATIVAN [Concomitant]
  8. MIMEY HORMONE [Concomitant]
  9. GILENYA [Suspect]
     Indication: MULTIPLE SCLEROSIS
     Dosage: 0.5 MG QD, ORAL
     Route: 048
     Dates: start: 20110119
  10. EVOXAC [Concomitant]

REACTIONS (3)
  - DYSGEUSIA [None]
  - VISUAL IMPAIRMENT [None]
  - MEMORY IMPAIRMENT [None]
